FAERS Safety Report 10392797 (Version 1)
Quarter: 2014Q3

REPORT INFORMATION
  Report Type: Spontaneous
  Country: FR (occurrence: FR)
  Receive Date: 20140819
  Receipt Date: 20140819
  Transmission Date: 20150326
  Serious: Yes (Hospitalization)
  Sender: FDA-Public Use
  Company Number: FR-JNJFOC-20140814572

PATIENT
  Age: 34 Year
  Sex: Female
  Weight: 51 kg

DRUGS (1)
  1. SIMPONI [Suspect]
     Active Substance: GOLIMUMAB
     Indication: SAPHO SYNDROME
     Route: 058
     Dates: start: 20140310, end: 2014

REACTIONS (3)
  - Alopecia [Not Recovered/Not Resolved]
  - Off label use [Unknown]
  - Pustular psoriasis [Not Recovered/Not Resolved]

NARRATIVE: CASE EVENT DATE: 20140323
